FAERS Safety Report 15531587 (Version 1)
Quarter: 2018Q4

REPORT INFORMATION
  Report Type: Report from Study
  Country: RU (occurrence: RU)
  Receive Date: 20181019
  Receipt Date: 20181019
  Transmission Date: 20190205
  Serious: Yes (Hospitalization, Other)
  Sender: FDA-Public Use
  Company Number: RU-ASTRAZENECA-2018SE93839

PATIENT
  Age: 43 Year
  Sex: Male
  Weight: 92 kg

DRUGS (2)
  1. METFORMIN [Concomitant]
     Active Substance: METFORMIN HYDROCHLORIDE
  2. FORXIGA [Suspect]
     Active Substance: DAPAGLIFLOZIN
     Indication: TYPE 2 DIABETES MELLITUS
     Route: 048
     Dates: start: 2016, end: 201806

REACTIONS (3)
  - Blood glucose increased [Recovered/Resolved]
  - Hepatic pain [Unknown]
  - Blood ketone body [Unknown]

NARRATIVE: CASE EVENT DATE: 201805
